FAERS Safety Report 21945049 (Version 1)
Quarter: 2023Q1

REPORT INFORMATION
  Report Type: Spontaneous
  Country: US (occurrence: None)
  Receive Date: 20230201
  Receipt Date: 20230201
  Transmission Date: 20230417
  Serious: Yes (Hospitalization)
  Sender: FDA-Public Use
  Company Number: None

PATIENT
  Sex: Female

DRUGS (12)
  1. MYCOPHENOLIC ACID [Suspect]
     Active Substance: MYCOPHENOLIC ACID
     Indication: Renal transplant
     Route: 048
     Dates: start: 20160802
  2. B12-ACTIVE CHW [Concomitant]
  3. FERROUS SULF TAB [Concomitant]
  4. FOSAMAX TAB [Concomitant]
  5. LANTUS SOLOS INJ [Concomitant]
  6. MACRODANTIN CAP [Concomitant]
  7. METFORMIN TAB [Concomitant]
  8. MYCOPHENOLATE MOFETIL [Concomitant]
     Active Substance: MYCOPHENOLATE MOFETIL
  9. NEORAL [Concomitant]
     Active Substance: CYCLOSPORINE
  10. NEORAL [Concomitant]
  11. PREDNISONE [Concomitant]
     Active Substance: PREDNISONE
  12. VITAMIN B12 [Concomitant]
     Active Substance: CYANOCOBALAMIN

REACTIONS (2)
  - COVID-19 [None]
  - Therapy interrupted [None]
